FAERS Safety Report 6518747-X (Version None)
Quarter: 2009Q4

REPORT INFORMATION
  Report Type: 
  Country: None (occurrence: None)
  Receive Date: 20091218
  Receipt Date: 20091210
  Transmission Date: 20100525
  Serious: Yes (Death)
  Sender: FDA-Public Use
  Company Number: TUK2009A00204

PATIENT
  Age: 55 Year
  Sex: Female

DRUGS (9)
  1. ACTOS [Suspect]
     Indication: TYPE 2 DIABETES MELLITUS
     Dosage: ORAL; 45 MG (45 MG)  ORAL
     Route: 048
     Dates: start: 20080220
  2. ACTOS [Suspect]
     Indication: TYPE 2 DIABETES MELLITUS
     Dosage: ORAL; 45 MG (45 MG)  ORAL
     Route: 048
     Dates: start: 20090301
  3. ASPIRIN [Concomitant]
  4. BENDROFLUMETHIAZIDE (BENDROFLUMETHIAZIDE) [Concomitant]
  5. FELODIPINE [Concomitant]
  6. GLIPIZIDE [Concomitant]
  7. METFORMIN HCL [Concomitant]
  8. PERINDOPRIL ERBUMINE(PERINDOPRIL ERHUMINE) [Concomitant]
  9. SIMVASTATIN [Concomitant]

REACTIONS (1)
  - SUDDEN DEATH [None]
